FAERS Safety Report 6715770-7 (Version None)
Quarter: 2010Q2

REPORT INFORMATION
  Report Type: 
  Country: None (occurrence: None)
  Receive Date: 20100506
  Receipt Date: 20100506
  Transmission Date: 20101027
  Serious: Yes (Hospitalization, Other)
  Sender: FDA-Public Use
  Company Number: None

PATIENT
  Sex: Male
  Weight: 118.3888 kg

DRUGS (3)
  1. GABEPENTIN (GENERIC) 900 MG TID PO [Suspect]
     Indication: INTERVERTEBRAL DISC DEGENERATION
     Dosage: 900MG TID PO
     Route: 048
     Dates: start: 20091201, end: 20100101
  2. GABEPENTIN (GENERIC) 900 MG TID PO [Suspect]
     Indication: PAIN
     Dosage: 900MG TID PO
     Route: 048
     Dates: start: 20091201, end: 20100101
  3. GABEPENTIN (GENERIC) 900 MG TID PO [Suspect]
     Indication: RADICULOPATHY
     Dosage: 900MG TID PO
     Route: 048
     Dates: start: 20091201, end: 20100101

REACTIONS (1)
  - DIABETES MELLITUS [None]
